FAERS Safety Report 15778946 (Version 2)
Quarter: 2019Q1

REPORT INFORMATION
  Report Type: Spontaneous
  Country: JP (occurrence: JP)
  Receive Date: 20190101
  Receipt Date: 20190307
  Transmission Date: 20190417
  Serious: Yes (Other)
  Sender: FDA-Public Use
  Company Number: JP-ROCHE-2236422

PATIENT
  Age: 63 Year
  Sex: Female

DRUGS (2)
  1. RANIBIZUMAB. [Suspect]
     Active Substance: RANIBIZUMAB
     Indication: DIABETIC RETINAL OEDEMA
     Dosage: UNK, RIGHT 2 TIMES
     Route: 031
  2. RANIBIZUMAB. [Suspect]
     Active Substance: RANIBIZUMAB
     Dosage: UNK, LEFT 3 TIMES
     Route: 031

REACTIONS (5)
  - Endophthalmitis [Unknown]
  - Anterior chamber cell [Unknown]
  - Hypopyon [Unknown]
  - Visual acuity reduced [Unknown]
  - Staphylococcal infection [Unknown]

NARRATIVE: CASE EVENT DATE: 20151224
